FAERS Safety Report 17448739 (Version 4)
Quarter: 2020Q2

REPORT INFORMATION
  Report Type: Spontaneous
  Country: US (occurrence: US)
  Receive Date: 20200224
  Receipt Date: 20200626
  Transmission Date: 20200713
  Serious: No
  Sender: FDA-Public Use
  Company Number: US-TEVA-2020-US-1189117

PATIENT
  Sex: Female

DRUGS (5)
  1. SYNRIBO [Suspect]
     Active Substance: OMACETAXINE MEPESUCCINATE
     Indication: PHILADELPHIA CHROMOSOME POSITIVE
     Dosage: DOSE: 2.4 MG/0.69ML, BID FOR 3 DAYS OF 28 DAY CYCLE
     Route: 065
     Dates: start: 20191026
  2. SYNRIBO [Suspect]
     Active Substance: OMACETAXINE MEPESUCCINATE
     Indication: CHRONIC MYELOID LEUKAEMIA
     Dosage: DOSE: 2.4 MG/0.69ML, BID FOR 5 DAYS
     Route: 065
     Dates: start: 20191026
  3. ADVIL [Concomitant]
     Active Substance: IBUPROFEN
     Route: 065
  4. EXCEDRIN MIGRAINE [Concomitant]
     Active Substance: ACETAMINOPHEN\ASPIRIN\CAFFEINE
     Route: 065
  5. CENTRUM [Concomitant]
     Active Substance: VITAMINS
     Route: 065

REACTIONS (7)
  - Insomnia [Unknown]
  - Pain [Unknown]
  - Rhinorrhoea [Recovered/Resolved]
  - Asthenia [Unknown]
  - Injection site irritation [Unknown]
  - Feeling abnormal [Unknown]
  - Nausea [Unknown]
